FAERS Safety Report 7434671-2 (Version None)
Quarter: 2011Q2

REPORT INFORMATION
  Report Type: 
  Country: None (occurrence: None)
  Receive Date: 20110425
  Receipt Date: 20110411
  Transmission Date: 20111010
  Serious: Yes (Other)
  Sender: FDA-Public Use
  Company Number: CA-CELGENEUS-028-21880-11041332

PATIENT
  Sex: Female

DRUGS (10)
  1. REVLIMID [Suspect]
     Dosage: 10 MILLIGRAM
     Route: 048
     Dates: start: 20110401
  2. COVERSYL [Concomitant]
     Route: 065
  3. CALCIUM [Concomitant]
     Route: 065
  4. DEXAMETHASONE [Concomitant]
     Route: 065
  5. MAGNESIUM [Concomitant]
     Route: 065
  6. PANTOPRAZOLE [Concomitant]
     Route: 065
  7. MINOCIN [Concomitant]
     Route: 065
  8. EPREX [Concomitant]
     Route: 065
  9. VITAMIN D [Concomitant]
     Route: 065
  10. REVLIMID [Suspect]
     Indication: MULTIPLE MYELOMA
     Dosage: 25 MILLIGRAM
     Route: 048
     Dates: start: 20110315, end: 20110406

REACTIONS (9)
  - HYPOVENTILATION [None]
  - HEART RATE INCREASED [None]
  - HYPERHIDROSIS [None]
  - SWELLING FACE [None]
  - VISION BLURRED [None]
  - MUSCLE SPASMS [None]
  - HYPOAESTHESIA [None]
  - GAIT DISTURBANCE [None]
  - TINNITUS [None]
